FAERS Safety Report 7375236-0 (Version None)
Quarter: 2011Q1

REPORT INFORMATION
  Report Type: 
  Country: None (occurrence: None)
  Receive Date: 20110325
  Receipt Date: 20110321
  Transmission Date: 20110831
  Serious: Yes (Other)
  Sender: FDA-Public Use
  Company Number: FR-ROCHE-766761

PATIENT
  Sex: Female

DRUGS (2)
  1. AVASTIN [Suspect]
     Dosage: FORM: UNKNOWN
     Route: 042
     Dates: start: 20100101, end: 20100801
  2. ZOMETA [Suspect]
     Dosage: FORM: INJECTABLE SOLUTION.
     Route: 042
     Dates: start: 20100101, end: 20100801

REACTIONS (1)
  - OSTEONECROSIS [None]
